FAERS Safety Report 6027000-2 (Version None)
Quarter: 2009Q1

REPORT INFORMATION
  Report Type: 
  Country: None (occurrence: None)
  Receive Date: 20090105
  Receipt Date: 20081222
  Transmission Date: 20090719
  Serious: Yes (Other)
  Sender: FDA-Public Use
  Company Number: GB-PFIZER INC-2008159085

PATIENT

DRUGS (1)
  1. CELECOXIB [Suspect]
     Indication: TRANSITIONAL CELL CARCINOMA
     Dates: start: 20080311, end: 20081203

REACTIONS (1)
  - ARTHRITIS [None]
